FAERS Safety Report 15345987 (Version 1)
Quarter: 2018Q3

REPORT INFORMATION
  Report Type: Spontaneous
  Country: JP (occurrence: JP)
  Receive Date: 20180904
  Receipt Date: 20180904
  Transmission Date: 20181010
  Serious: Yes (Hospitalization)
  Sender: FDA-Public Use
  Company Number: JP-009507513-1808JPN002736J

PATIENT
  Age: 68 Year
  Sex: Male

DRUGS (4)
  1. RIVOTRIL [Concomitant]
     Active Substance: CLONAZEPAM
     Indication: SEDATION
     Dosage: UNK
     Route: 048
     Dates: start: 201707, end: 201801
  2. STROMECTOL [Suspect]
     Active Substance: IVERMECTIN
     Indication: ACARODERMATITIS
     Dosage: 4 DF, QW
     Route: 048
     Dates: start: 20171226
  3. DEPAKENE [Concomitant]
     Active Substance: VALPROIC ACID
     Indication: SEDATION
     Dosage: UNK
     Route: 048
     Dates: start: 201707, end: 201801
  4. ROHYPNOL [Concomitant]
     Active Substance: FLUNITRAZEPAM
     Indication: SEDATION
     Dosage: UNK
     Route: 048
     Dates: start: 201707, end: 201801

REACTIONS (2)
  - Somnolence [Recovered/Resolved]
  - Dysphagia [Recovering/Resolving]

NARRATIVE: CASE EVENT DATE: 20171226
